FAERS Safety Report 10281145 (Version 2)
Quarter: 2014Q3

REPORT INFORMATION
  Report Type: Spontaneous
  Country: IT (occurrence: IT)
  Receive Date: 20140707
  Receipt Date: 20140905
  Transmission Date: 20150326
  Serious: Yes (Death, Hospitalization)
  Sender: FDA-Public Use
  Company Number: IT-BRISTOL-MYERS SQUIBB COMPANY-21105176

PATIENT
  Age: 70 Year
  Sex: Female
  Weight: 44 kg

DRUGS (4)
  1. YERVOY [Suspect]
     Active Substance: IPILIMUMAB
     Indication: MALIGNANT MELANOMA
     Dosage: 5 MG/ML INFUSION SOLUTION
     Route: 042
     Dates: start: 20140410, end: 20140526
  2. CLEXANE [Suspect]
     Active Substance: ENOXAPARIN SODIUM
     Dosage: 4000 IU AXA INJECTION SOLUTION
     Route: 058
  3. BISOPROLOL HEMIFUMARATE [Concomitant]
     Active Substance: BISOPROLOL
     Route: 048
  4. LANOXIN [Concomitant]
     Active Substance: DIGOXIN
     Dosage: 1DF: 0.0625 MG TABS
     Route: 048

REACTIONS (4)
  - Pyrexia [Recovering/Resolving]
  - Malaise [Recovering/Resolving]
  - Anaemia [Unknown]
  - Clostridium difficile colitis [Fatal]

NARRATIVE: CASE EVENT DATE: 201405
